FAERS Safety Report 6314273-1 (Version None)
Quarter: 2009Q3

REPORT INFORMATION
  Report Type: 
  Country: None (occurrence: None)
  Receive Date: 20090817
  Receipt Date: 20090801
  Transmission Date: 20100115
  Serious: Yes (Other)
  Sender: FDA-Public Use
  Company Number: 230495K09BRA

PATIENT
  Sex: Male

DRUGS (1)
  1. REBIF [Suspect]
     Dosage: 44 MCG, 3 IN 1 WEEKS

REACTIONS (4)
  - CENTRAL NERVOUS SYSTEM LESION [None]
  - DECREASED APPETITE [None]
  - HYPOAESTHESIA [None]
  - WEIGHT DECREASED [None]
